FAERS Safety Report 14257407 (Version 1)
Quarter: 2017Q4

REPORT INFORMATION
  Report Type: Spontaneous
  Country: CA (occurrence: CA)
  Receive Date: 20171207
  Receipt Date: 20171207
  Transmission Date: 20180321
  Serious: Yes (Hospitalization, Other)
  Sender: FDA-Public Use
  Company Number: CA-ABBVIE-17K-028-2181531-00

PATIENT
  Age: 65 Year
  Sex: Female

DRUGS (7)
  1. HUMIRA [Suspect]
     Active Substance: ADALIMUMAB
     Indication: PRODUCT USED FOR UNKNOWN INDICATION
     Route: 058
  2. ORENCIA [Suspect]
     Active Substance: ABATACEPT
     Indication: PRODUCT USED FOR UNKNOWN INDICATION
     Route: 065
     Dates: end: 201603
  3. PREDNISONE. [Concomitant]
     Active Substance: PREDNISONE
     Indication: PRODUCT USED FOR UNKNOWN INDICATION
  4. ORENCIA [Suspect]
     Active Substance: ABATACEPT
     Route: 065
     Dates: start: 201609, end: 201611
  5. ENBREL [Suspect]
     Active Substance: ETANERCEPT
     Indication: RHEUMATOID ARTHRITIS
     Route: 058
     Dates: start: 201007, end: 201307
  6. XELJANZ [Suspect]
     Active Substance: TOFACITINIB CITRATE
     Indication: PRODUCT USED FOR UNKNOWN INDICATION
     Route: 065
     Dates: start: 201612, end: 201703
  7. ADALIMUMAB [Suspect]
     Active Substance: ADALIMUMAB
     Indication: PRODUCT USED FOR UNKNOWN INDICATION
     Route: 065
     Dates: start: 200912, end: 201006

REACTIONS (13)
  - Knee arthroplasty [Unknown]
  - Drug ineffective [Unknown]
  - Pneumonia bacterial [Unknown]
  - Arthralgia [Unknown]
  - Musculoskeletal stiffness [Unknown]
  - Headache [Unknown]
  - Lower respiratory tract infection [Unknown]
  - Joint swelling [Unknown]
  - Sinusitis [Unknown]
  - Clostridium difficile infection [Unknown]
  - Peripheral swelling [Unknown]
  - Memory impairment [Unknown]
  - Pain in extremity [Unknown]

NARRATIVE: CASE EVENT DATE: 201605
